FAERS Safety Report 24106644 (Version 2)
Quarter: 2024Q3

REPORT INFORMATION
  Report Type: Report from Study
  Country: BE (occurrence: BE)
  Receive Date: 20240717
  Receipt Date: 20240919
  Transmission Date: 20241017
  Serious: Yes (Other)
  Sender: APELLIS PHARMACEUTICALS
  Company Number: BE-BIOVITRUM-2024-BE-000042

PATIENT

DRUGS (2)
  1. PEGCETACOPLAN [Suspect]
     Active Substance: PEGCETACOPLAN
     Indication: Paroxysmal nocturnal haemoglobinuria
     Dosage: 2 TIMES PER WEEK (1080 MG / 20 ML )?CURRENT PRESCRIPTION PERIOD: 2024-04-26 TO 2025-04-25
     Route: 058
     Dates: start: 20230511
  2. PEGCETACOPLAN [Suspect]
     Active Substance: PEGCETACOPLAN
     Dosage: 2 TIMES PER WEEK (1080 MG / 20 ML ) (8ST)?CURRENT PRESCRIPTION PERIOD: 2024-04-26 TO 2025-04-25
     Route: 058
     Dates: start: 20231009

REACTIONS (4)
  - Pneumonitis [Recovered/Resolved]
  - Haemolysis [Recovered/Resolved]
  - Pruritus [Unknown]
  - Hypercholesterolaemia [Unknown]

NARRATIVE: CASE EVENT DATE: 20231129
